FAERS Safety Report 9456565 (Version 2)
Quarter: 2013Q3

REPORT INFORMATION
  Report Type: Spontaneous
  Country: JP (occurrence: None)
  Receive Date: 20130809
  Receipt Date: 20130814
  Transmission Date: 20140515
  Serious: Yes (Hospitalization)
  Sender: FDA-Public Use
  Company Number: SP06888

PATIENT
  Age: 73 Year
  Sex: Female

DRUGS (5)
  1. MOVIPREP [Suspect]
     Indication: BOWEL PREPARATION
     Route: 048
     Dates: start: 20130722, end: 20130722
  2. CRESTOR [Concomitant]
  3. VESICARE [Concomitant]
  4. ASACOL [Concomitant]
  5. LAC-B [Concomitant]

REACTIONS (10)
  - Malaise [None]
  - Aspartate aminotransferase increased [None]
  - Alanine aminotransferase [None]
  - Nausea [None]
  - Vomiting [None]
  - Blood lactate dehydrogenase increased [None]
  - White blood cell count increased [None]
  - Hepatic function abnormal [None]
  - Abdominal pain upper [None]
  - Post procedural complication [None]
